FAERS Safety Report 18623678 (Version 1)
Quarter: 2020Q4

REPORT INFORMATION
  Report Type: Spontaneous
  Country: US (occurrence: US)
  Receive Date: 20201216
  Receipt Date: 20201216
  Transmission Date: 20210114
  Serious: Yes (Death)
  Sender: FDA-Public Use
  Company Number: None

PATIENT
  Age: 65 Year
  Sex: Female

DRUGS (11)
  1. ALLOPURINOL 100MG TAB [Concomitant]
     Active Substance: ALLOPURINOL
  2. BUMETANIDE 1MG TAB [Concomitant]
  3. CARVEDILOL 3.125MG TAB [Concomitant]
  4. MYCOPHENOLIC ACID DR [Suspect]
     Active Substance: MYCOPHENOLIC ACID
     Indication: RENAL TRANSPLANT
     Route: 048
     Dates: start: 20200723, end: 20201205
  5. TACROLIMUS. [Suspect]
     Active Substance: TACROLIMUS
     Indication: RENAL TRANSPLANT
     Route: 048
     Dates: start: 20200723, end: 20201205
  6. LEVEMIR FLEXTOUCH PEN U100 [Concomitant]
  7. PREDNISONE 5MG TAB [Concomitant]
     Active Substance: PREDNISONE
  8. PRAVASTATIN 10MG TAB [Concomitant]
  9. NOVOLOG FLEXPEN U100 [Concomitant]
  10. SERTRALINE 25MG TAB [Concomitant]
  11. SULFAMETH/TRIMETHOPRIM 400/80MG TAB [Concomitant]

REACTIONS (1)
  - Death [None]

NARRATIVE: CASE EVENT DATE: 20201205
